FAERS Safety Report 6170236-0 (Version None)
Quarter: 2009Q2

REPORT INFORMATION
  Report Type: 
  Country: None (occurrence: None)
  Receive Date: 20090428
  Receipt Date: 20090420
  Transmission Date: 20091009
  Serious: Yes (Other)
  Sender: FDA-Public Use
  Company Number: GR-AVENTIS-200914214GDDC

PATIENT
  Age: 75 Year
  Sex: Female

DRUGS (3)
  1. GLIMEPIRIDE [Suspect]
  2. IRBESARTAN [Suspect]
  3. BROMAZEPAM [Suspect]

REACTIONS (1)
  - PEMPHIGOID [None]
